FAERS Safety Report 24757511 (Version 1)
Quarter: 2024Q4

REPORT INFORMATION
  Report Type: Spontaneous
  Country: FR (occurrence: FR)
  Receive Date: 20241220
  Receipt Date: 20241220
  Transmission Date: 20250115
  Serious: Yes (Hospitalization, Other)
  Sender: AUROBINDO
  Company Number: FR-ROCHE-10000142061

PATIENT
  Age: 44 Year
  Sex: Female
  Weight: 72 kg

DRUGS (4)
  1. CARBOPLATIN [Suspect]
     Active Substance: CARBOPLATIN
     Indication: Triple negative breast cancer
     Dosage: 379 MILLIGRAM, EVERY 3 WEEK (ON 22-OCT-2024, SHE RECEIVED MOST RECENT DOSE OF CARBOPLATINE PRIOR TO
     Route: 042
     Dates: start: 20240809
  2. ATEZOLIZUMAB [Suspect]
     Active Substance: ATEZOLIZUMAB
     Indication: Triple negative breast cancer
     Dosage: 1200 MILLIGRAM, EVERY 3 WEEK (ON 12-NOV-2024, SHE RECEIVED MOST RECENT DOSE OF ATEZOLZUMAB PRIOR TO
     Route: 042
     Dates: start: 20240809
  3. PACLITAXEL [Suspect]
     Active Substance: PACLITAXEL
     Indication: Triple negative breast cancer
     Dosage: 185 MILLIGRAM, EVERY 3 WEEK (D1, D8, D15 OF EVERY 28-DAY CYCLE.ON 22-OCT-2024, SHE RECEIVED MOST REC
     Route: 042
     Dates: start: 20240809
  4. TIRAGOLUMAB [Suspect]
     Active Substance: TIRAGOLUMAB
     Indication: Triple negative breast cancer
     Dosage: 600 MILLIGRAM, EVERY 3 WEEK (ON 12-NOV-2024, SHE RECEIVED MOST RECENT DOSE OF TIRAGOLUMAB PRIOR TO F
     Route: 042
     Dates: start: 20240809

REACTIONS (1)
  - Febrile bone marrow aplasia [Not Recovered/Not Resolved]

NARRATIVE: CASE EVENT DATE: 20241121
